FAERS Safety Report 7051877-5 (Version None)
Quarter: 2010Q4

REPORT INFORMATION
  Report Type: 
  Country: None (occurrence: None)
  Receive Date: 20101019
  Receipt Date: 20101014
  Transmission Date: 20110411
  Serious: Yes (Hospitalization)
  Sender: FDA-Public Use
  Company Number: GXKR2010DE11578

PATIENT
  Sex: Female

DRUGS (2)
  1. CLARITHROMYCIN 1A PHARMA (NGX) [Suspect]
     Indication: RESPIRATORY TRACT INFECTION
     Dosage: 500 MG, BID
     Route: 048
  2. SEROQUEL [Interacting]
     Dosage: LONG-TERM TREATMENT
     Route: 048

REACTIONS (14)
  - BLOOD PRESSURE DECREASED [None]
  - BODY TEMPERATURE INCREASED [None]
  - DIZZINESS [None]
  - DRUG INTERACTION [None]
  - GINGIVAL BLISTER [None]
  - HEADACHE [None]
  - HEARING IMPAIRED [None]
  - HEART RATE INCREASED [None]
  - MUSCLE SPASMS [None]
  - MUSCLE TWITCHING [None]
  - NAUSEA [None]
  - NYSTAGMUS [None]
  - VISUAL IMPAIRMENT [None]
  - VOMITING [None]
